FAERS Safety Report 7684166 (Version 2)
Quarter: 2012Q4

REPORT INFORMATION
  Report Type: 
  Country: DE (occurrence: DE)
  Receive Date: 20101129
  Receipt Date: 20120924
  Transmission Date: 20130627
  Serious: Yes (Death, Hospitalization)
  Sender: FDA-Public Use
  Company Number: DE-RANBAXY-2009RR-22406

PATIENT
  Age: 76 Year
  Sex: Female

DRUGS (7)
  1. RAMIPRIL [Suspect]
     Indication: HYPERTENSION
     Dosage: 2.5 mg, qd
     Route: 048
     Dates: start: 200606
  2. TOREM [Suspect]
     Indication: HYPERTENSION
     Dosage: 10 mg, bid
     Route: 048
     Dates: start: 20080901, end: 20080908
  3. TRIMINEURIN [Concomitant]
     Indication: SLEEP DISORDER THERAPY
     Dosage: 100 mg, qd
     Route: 048
     Dates: start: 200606, end: 20080908
  4. ASS ^CT-ARSNEIMITTEL^ [Concomitant]
     Indication: PROPHYLAXIS
     Dosage: 150 mg, qd
     Route: 048
     Dates: start: 200606
  5. BISOPROLOL [Concomitant]
     Indication: HYPERTENSION
     Dosage: 2.5 mg, bid
     Route: 048
     Dates: start: 200606
  6. OMEP [Concomitant]
     Indication: MALLORY-WEISS SYNDROME
     Dosage: 20 mg, qd
     Route: 048
     Dates: start: 20080810
  7. TIAPRIDEX [Concomitant]
     Indication: TARDIVE DYSKINESIA
     Dosage: UNK
     Route: 048
     Dates: start: 200606

REACTIONS (3)
  - Dehydration [Recovered/Resolved]
  - Syncope [Recovered/Resolved]
  - Drug interaction [Recovered/Resolved]
